FAERS Safety Report 7788290-9 (Version None)
Quarter: 2011Q3

REPORT INFORMATION
  Report Type: 
  Country: None (occurrence: None)
  Receive Date: 20110929
  Receipt Date: 20110929
  Transmission Date: 20111222
  Serious: Yes (Hospitalization)
  Sender: FDA-Public Use
  Company Number: None

PATIENT
  Sex: Female
  Weight: 68.9467 kg

DRUGS (3)
  1. BENDAMUSTINE [Suspect]
     Dosage: 216MG IV X 2 DOSES
     Route: 042
     Dates: start: 20110913
  2. BENDAMUSTINE [Suspect]
     Dosage: 216MG IV X 2 DOSES
     Route: 042
     Dates: start: 20110914
  3. RITUXAN [Suspect]
     Indication: B-CELL LYMPHOMA
     Dosage: 675MG IV X 1 DOSE
     Route: 042
     Dates: start: 20110913

REACTIONS (7)
  - OXYGEN SATURATION DECREASED [None]
  - DYSPNOEA [None]
  - URINE OUTPUT DECREASED [None]
  - CARDIAC FAILURE [None]
  - OEDEMA PERIPHERAL [None]
  - PLEURAL EFFUSION [None]
  - ATRIAL FIBRILLATION [None]
